FAERS Safety Report 12245673 (Version 1)
Quarter: 2016Q2

REPORT INFORMATION
  Report Type: Spontaneous
  Country: US (occurrence: None)
  Receive Date: 20160406
  Receipt Date: 20160406
  Transmission Date: 20160815
  Serious: Yes (Disabling)
  Sender: FDA-Public Use
  Company Number: None

PATIENT
  Age: 72 Year
  Sex: Female
  Weight: 68.95 kg

DRUGS (2)
  1. ZOCOR [Suspect]
     Active Substance: SIMVASTATIN
     Indication: BLOOD TRIGLYCERIDES INCREASED
     Route: 048
  2. RED YEAST RICE, 600 MG NATURE^S PLUS EXTENDED RELEASE MIN [Suspect]
     Active Substance: DIETARY SUPPLEMENT
     Indication: BLOOD CHOLESTEROL
     Dosage: 1 TABLET(S) AT BEDTIME TAKEN BY MOUTH
     Route: 048
     Dates: start: 20160324, end: 20160325

REACTIONS (1)
  - Gastrointestinal inflammation [None]
